FAERS Safety Report 19477349 (Version 1)
Quarter: 2021Q2

REPORT INFORMATION
  Report Type: Spontaneous
  Country: US (occurrence: US)
  Receive Date: 20210630
  Receipt Date: 20210630
  Transmission Date: 20210717
  Serious: Yes (Hospitalization, Disabling)
  Sender: FDA-Public Use
  Company Number: None

PATIENT
  Age: 65 Year
  Sex: Male

DRUGS (5)
  1. AMLODIPINE [Concomitant]
     Active Substance: AMLODIPINE BESYLATE
  2. TENOFOVIR [Concomitant]
     Active Substance: TENOFOVIR
  3. TAMSULOSIN [Concomitant]
     Active Substance: TAMSULOSIN
  4. CAPECITABINE 500MG [Suspect]
     Active Substance: CAPECITABINE
     Indication: COLORECTAL CANCER
     Dates: start: 20210410
  5. MULTIVITAMIN [Concomitant]
     Active Substance: VITAMINS

REACTIONS (3)
  - Fluid intake reduced [None]
  - Impaired self-care [None]
  - Feeding disorder [None]

NARRATIVE: CASE EVENT DATE: 20210629
